FAERS Safety Report 19068403 (Version 1)
Quarter: 2021Q1

REPORT INFORMATION
  Report Type: Spontaneous
  Country: US (occurrence: US)
  Receive Date: 20210327
  Receipt Date: 20210327
  Transmission Date: 20210420
  Serious: Yes (Hospitalization)
  Sender: FDA-Public Use
  Company Number: None

PATIENT
  Age: 69 Year
  Sex: Male

DRUGS (3)
  1. HUMIRA [Suspect]
     Active Substance: ADALIMUMAB
     Indication: CROHN^S DISEASE
     Dosage: ?          OTHER FREQUENCY:EVERY 2 WEEKS;?
     Route: 058
     Dates: start: 20191106
  2. MULTIVIT; VIBERZI; VITA D [Concomitant]
  3. ALLOPURINOL; CLARITIN; ELOCON; FOLIC ACID; [Concomitant]

REACTIONS (3)
  - Crohn^s disease [None]
  - Weight fluctuation [None]
  - Clostridium difficile infection [None]

NARRATIVE: CASE EVENT DATE: 20210312
